FAERS Safety Report 20810974 (Version 3)
Quarter: 2022Q3

REPORT INFORMATION
  Report Type: Spontaneous
  Country: JP (occurrence: JP)
  Receive Date: 20220510
  Receipt Date: 20220726
  Transmission Date: 20221027
  Serious: Yes (Other)
  Sender: FDA-Public Use
  Company Number: JP-BAYER-2022A066780

PATIENT
  Age: 70 Year
  Sex: Female
  Weight: 50.6 kg

DRUGS (6)
  1. ADEMPAS [Suspect]
     Active Substance: RIOCIGUAT
     Indication: Pulmonary arterial hypertension
     Dosage: GRADUAL INCREASE
     Route: 048
     Dates: start: 20220426, end: 20220503
  2. ADEMPAS [Suspect]
     Active Substance: RIOCIGUAT
     Indication: Hypoxia
     Dosage: DAILY DOSE 6 MG
     Route: 048
     Dates: start: 20220504, end: 202205
  3. ADEMPAS [Suspect]
     Active Substance: RIOCIGUAT
     Indication: Anaemia
     Dosage: GRADUAL DECREASE
     Route: 048
     Dates: start: 202205, end: 20220519
  4. AMLODIPINE [Concomitant]
     Active Substance: AMLODIPINE BESYLATE
     Indication: Hypertension
     Dosage: DAILY DOSE 5MG
  5. OPSUMIT [Concomitant]
     Active Substance: MACITENTAN
     Indication: Pulmonary hypertension
     Dosage: DAILY DOSE 10MG
     Dates: start: 20220422
  6. JANUVIA [Concomitant]
     Active Substance: SITAGLIPTIN PHOSPHATE
     Indication: Diabetes mellitus
     Dosage: DAILY DOSE 50MG

REACTIONS (5)
  - Hypoxia [Recovered/Resolved]
  - Pericardial effusion [Recovered/Resolved]
  - Anaemia [Recovered/Resolved]
  - Oxygen saturation decreased [Recovered/Resolved]
  - Haemoglobin decreased [Recovered/Resolved]

NARRATIVE: CASE EVENT DATE: 20220504
